FAERS Safety Report 5125912-5 (Version None)
Quarter: 2006Q4

REPORT INFORMATION
  Report Type: 
  Country: None (occurrence: None)
  Receive Date: 20061012
  Receipt Date: 20061006
  Transmission Date: 20070319
  Serious: Yes (Other)
  Sender: FDA-Public Use
  Company Number: GB-GLAXOSMITHKLINE-B0441719A

PATIENT
  Age: 41 Year
  Sex: Female
  Weight: 60 kg

DRUGS (8)
  1. ACYCLOVIR [Suspect]
     Dosage: 800MG FIVE TIMES PER DAY
     Route: 065
     Dates: start: 20060821, end: 20060828
  2. CETIRIZINE HCL [Concomitant]
     Dosage: 10MG PER DAY
     Route: 048
     Dates: start: 20051205
  3. DERMOL (UK) [Concomitant]
     Indication: ECZEMA
     Route: 061
     Dates: start: 20020101
  4. DIPROBASE [Concomitant]
     Indication: ECZEMA
     Route: 061
     Dates: start: 20020101
  5. EPADERM [Concomitant]
     Indication: ECZEMA
     Route: 061
     Dates: start: 20020101
  6. SERETIDE [Concomitant]
     Indication: ASTHMA
     Dosage: 50UG TWICE PER DAY
     Route: 055
  7. VENTOLIN [Concomitant]
     Indication: ASTHMA
     Route: 055
     Dates: start: 20020101
  8. WHITE SOFT PARAFFIN [Concomitant]
     Indication: ECZEMA
     Route: 061
     Dates: start: 20020101

REACTIONS (1)
  - ALOPECIA [None]
